FAERS Safety Report 7524056-2 (Version None)
Quarter: 2011Q2

REPORT INFORMATION
  Report Type: 
  Country: None (occurrence: None)
  Receive Date: 20110605
  Receipt Date: 20110526
  Transmission Date: 20111010
  Serious: Yes (Hospitalization)
  Sender: FDA-Public Use
  Company Number: US-BRISTOL-MYERS SQUIBB COMPANY-15781891

PATIENT
  Age: 59 Year
  Sex: Male
  Weight: 82 kg

DRUGS (2)
  1. ERBITUX [Suspect]
     Indication: PHARYNGEAL CANCER STAGE UNSPECIFIED
     Dosage: LAST DOSE:03MAR2009; 760MG:15JAN09;495MG:21JAN09,27JAN09,03FEB09,02OCT09,17FEB09,24FEB09,3MAR09
     Dates: start: 20090115
  2. CISPLATIN [Suspect]
     Indication: PHARYNGEAL CANCER STAGE UNSPECIFIED
     Dosage: LAST DOSE:12FEB09; 139MG:22JAN2009,12FEB2009
     Dates: start: 20090115

REACTIONS (1)
  - DYSPHAGIA [None]
